FAERS Safety Report 8834087 (Version 1)
Quarter: 2012Q4

REPORT INFORMATION
  Report Type: 
  Country: TR (occurrence: TR)
  Receive Date: 20121010
  Receipt Date: 20121010
  Transmission Date: 20130627
  Serious: Yes (Other)
  Sender: FDA-Public Use
  Company Number: TR-PFIZER INC-2012246415

PATIENT
  Age: 83 Year
  Sex: Male

DRUGS (1)
  1. LINEZOLID [Suspect]
     Indication: URINARY TRACT INFECTION
     Dosage: UNK

REACTIONS (2)
  - Hepatitis toxic [Unknown]
  - Liver injury [Unknown]
